FAERS Safety Report 4354782-8 (Version None)
Quarter: 2004Q2

REPORT INFORMATION
  Report Type: 
  Country: None (occurrence: None)
  Receive Date: 20040507
  Receipt Date: 20040402
  Transmission Date: 20050107
  Serious: Yes (Other)
  Sender: FDA-Public Use
  Company Number: GB-MERCK-0404GBR00024

PATIENT
  Age: 72 Year
  Sex: Male

DRUGS (5)
  1. CLOBETASONE BUTYRATE [Concomitant]
     Indication: CUTANEOUS LUPUS ERYTHEMATOSUS
     Route: 061
  2. HYDROCORTISONE BUTYRATE [Concomitant]
     Indication: SYSTEMIC LUPUS ERYTHEMATOSUS
     Route: 061
  3. OMEPRAZOLE [Concomitant]
     Indication: DYSPEPSIA
     Route: 048
     Dates: start: 19960101
  4. VIOXX [Suspect]
     Indication: LOCALISED OSTEOARTHRITIS
     Route: 048
     Dates: start: 20031010, end: 20031025
  5. VIOXX [Suspect]
     Route: 048
     Dates: start: 20031026, end: 20040316

REACTIONS (2)
  - OBSTRUCTION [None]
  - RASH [None]
